FAERS Safety Report 4324036-4 (Version None)
Quarter: 2004Q1

REPORT INFORMATION
  Report Type: 
  Country: None (occurrence: None)
  Receive Date: 20040326
  Receipt Date: 20031210
  Transmission Date: 20041129
  Serious: No
  Sender: FDA-Public Use
  Company Number: US-GLAXOSMITHKLINE-A0442644A

PATIENT
  Age: 68 Year
  Sex: Female

DRUGS (8)
  1. ADVAIR DISKUS 100/50 [Suspect]
     Indication: ASTHMA
     Dosage: 1PUFF TWICE PER DAY
     Route: 055
     Dates: start: 20030101
  2. SINGULAIR [Concomitant]
  3. THYROID MEDICATION [Concomitant]
  4. ASPIRIN [Concomitant]
  5. ZYRTEC [Concomitant]
  6. TENORMIN [Concomitant]
  7. TYLENOL (CAPLET) [Concomitant]
  8. ZOLOFT [Concomitant]

REACTIONS (4)
  - OEDEMA PERIPHERAL [None]
  - PAIN IN EXTREMITY [None]
  - STOMATITIS [None]
  - WEIGHT INCREASED [None]
